FAERS Safety Report 4478807-4 (Version None)
Quarter: 2004Q3

REPORT INFORMATION
  Report Type: 
  Country: None (occurrence: None)
  Receive Date: 20040923
  Receipt Date: 20040721
  Transmission Date: 20050211
  Serious: No
  Sender: FDA-Public Use
  Company Number: USA040773270

PATIENT
  Age: 75 Year
  Sex: Female

DRUGS (4)
  1. FORTEO [Suspect]
     Indication: OSTEOPOROSIS
     Dosage: 20 UG DAY
     Dates: start: 20040624
  2. BEXTRA [Concomitant]
  3. ZOCOR [Concomitant]
  4. CIMETIDINE [Concomitant]

REACTIONS (5)
  - CHILLS [None]
  - INJECTION SITE ERYTHEMA [None]
  - INJECTION SITE STINGING [None]
  - PALPITATIONS [None]
  - RASH MACULAR [None]
